FAERS Safety Report 7981835-5 (Version None)
Quarter: 2011Q4

REPORT INFORMATION
  Report Type: 
  Country: None (occurrence: None)
  Receive Date: 20111213
  Receipt Date: 20111129
  Transmission Date: 20120403
  Serious: Yes (Other)
  Sender: FDA-Public Use
  Company Number: 2011AP002901

PATIENT
  Age: 15 Month
  Sex: Male

DRUGS (1)
  1. ONDANSETRON HYDROCHLORIDE [Suspect]
     Dosage: 18 DF

REACTIONS (9)
  - FLUSHING [None]
  - AGITATION [None]
  - SINUS TACHYCARDIA [None]
  - ELECTROCARDIOGRAM QT PROLONGED [None]
  - ACCIDENTAL OVERDOSE [None]
  - IRRITABILITY [None]
  - SOMNOLENCE [None]
  - TOXICITY TO VARIOUS AGENTS [None]
  - MENTAL STATUS CHANGES [None]
